FAERS Safety Report 9473836 (Version 1)
Quarter: 2013Q3

REPORT INFORMATION
  Report Type: Spontaneous
  Country: US (occurrence: US)
  Receive Date: 20130823
  Receipt Date: 20130823
  Transmission Date: 20140515
  Serious: No
  Sender: FDA-Public Use
  Company Number: US-BRISTOL-MYERS SQUIBB COMPANY-17031717

PATIENT
  Age: 52 Year
  Sex: Female

DRUGS (4)
  1. SPRYCEL [Suspect]
     Indication: LEUKAEMIA
     Route: 048
     Dates: start: 200709
  2. IBUPROFEN [Concomitant]
  3. POTASSIUM [Concomitant]
  4. LASIX [Concomitant]

REACTIONS (1)
  - Joint swelling [Unknown]
